FAERS Safety Report 9302236 (Version 1)
Quarter: 2013Q2

REPORT INFORMATION
  Report Type: Report from Study
  Country: ZA (occurrence: ZA)
  Receive Date: 20130522
  Receipt Date: 20130522
  Transmission Date: 20140414
  Serious: Yes (Hospitalization)
  Sender: FDA-Public Use
  Company Number: ZA-ROCHE-1226529

PATIENT
  Sex: Female

DRUGS (6)
  1. MIRCERA [Suspect]
     Indication: ANAEMIA
     Dosage: FROM RECORMON 4000IU SUB CUT TWICE A WEEK
     Route: 058
     Dates: start: 20091125
  2. MIRCERA [Suspect]
     Route: 058
     Dates: start: 20100503
  3. MIRCERA [Suspect]
     Route: 058
     Dates: start: 20101112
  4. MIRCERA [Suspect]
     Route: 058
     Dates: start: 20110920
  5. MIRCERA [Suspect]
     Route: 058
     Dates: start: 20120229
  6. MIRCERA [Suspect]
     Route: 058
     Dates: start: 20120829

REACTIONS (1)
  - Candida infection [Unknown]
